FAERS Safety Report 6704730-8 (Version None)
Quarter: 2010Q2

REPORT INFORMATION
  Report Type: 
  Country: None (occurrence: None)
  Receive Date: 20100430
  Receipt Date: 20100420
  Transmission Date: 20101027
  Serious: Yes (Other)
  Sender: FDA-Public Use
  Company Number: FR-ABBOTT-10P-056-0639785-00

PATIENT
  Age: 63 Year
  Sex: Male

DRUGS (5)
  1. KALETRA [Suspect]
     Indication: HIV INFECTION
  2. KALETRA [Interacting]
  3. COMBIVIR [Interacting]
     Indication: HIV INFECTION
  4. COMBIVIR [Interacting]
  5. CHEMOTHERAPY NOS [Interacting]
     Indication: NEOPLASM MALIGNANT

REACTIONS (6)
  - DRUG INTERACTION [None]
  - EAR NEOPLASM MALIGNANT [None]
  - EPIDERMOLYSIS [None]
  - NASAL CAVITY CANCER [None]
  - NEOPLASM MALIGNANT [None]
  - THROAT CANCER [None]
